FAERS Safety Report 22657523 (Version 1)
Quarter: 2023Q2

REPORT INFORMATION
  Report Type: Spontaneous
  Country: US (occurrence: US)
  Receive Date: 20230630
  Receipt Date: 20230630
  Transmission Date: 20230722
  Serious: No
  Sender: FDA-Public Use
  Company Number: US-GSK-US2023AMR086854

PATIENT
  Sex: Female

DRUGS (1)
  1. SUMATRIPTAN SUCCINATE [Suspect]
     Active Substance: SUMATRIPTAN SUCCINATE
     Indication: Product used for unknown indication
     Dosage: UNK,4MG, 2-UD SYRINGE ,KIT

REACTIONS (4)
  - Migraine [Unknown]
  - Adverse event [Unknown]
  - Product dose omission issue [Unknown]
  - Product complaint [Unknown]
